FAERS Safety Report 13578428 (Version 2)
Quarter: 2017Q3

REPORT INFORMATION
  Report Type: Spontaneous
  Country: US (occurrence: US)
  Receive Date: 20170524
  Receipt Date: 20170712
  Transmission Date: 20171127
  Serious: No
  Sender: FDA-Public Use
  Company Number: US-BAYER-2017-096116

PATIENT
  Age: 29 Year
  Sex: Female
  Weight: 86.62 kg

DRUGS (4)
  1. MIRENA [Suspect]
     Active Substance: LEVONORGESTREL
     Indication: CONTRACEPTION
     Dosage: 20 MCG/24HR, CONT
     Route: 015
     Dates: start: 20170417, end: 20170417
  2. PRENATAL [Concomitant]
     Active Substance: VITAMINS
  3. IRON [IRON] [Concomitant]
     Active Substance: IRON
     Dosage: 1 DF, QD
     Route: 048
  4. LEVOTHYROXINE SODIUM. [Concomitant]
     Active Substance: LEVOTHYROXINE SODIUM
     Dosage: 88 MCG/ML, UNK

REACTIONS (1)
  - Device deployment issue [Recovered/Resolved]

NARRATIVE: CASE EVENT DATE: 20170417
